FAERS Safety Report 5672629-4 (Version None)
Quarter: 2008Q1

REPORT INFORMATION
  Report Type: 
  Country: None (occurrence: None)
  Receive Date: 20080319
  Receipt Date: 20080312
  Transmission Date: 20080703
  Serious: Yes (Hospitalization)
  Sender: FDA-Public Use
  Company Number: US-MERCK-0611USA06662

PATIENT
  Age: 74 Year
  Sex: Female

DRUGS (7)
  1. FOSAMAX [Suspect]
     Indication: OSTEOPOROSIS
     Route: 048
     Dates: start: 20031105, end: 20060125
  2. AVALIDE [Concomitant]
     Indication: HYPERTENSION
     Route: 065
     Dates: start: 20011228, end: 20051225
  3. METHIMAZOLE [Concomitant]
     Indication: HYPERTHYROIDISM
     Route: 065
     Dates: start: 20020401, end: 20051225
  4. NORVASC [Concomitant]
     Indication: HYPERTENSION
     Route: 065
     Dates: start: 20010201, end: 20051025
  5. GALANTAMINE HYDROBROMIDE [Concomitant]
     Indication: DEMENTIA
     Route: 065
  6. ASPIRIN [Concomitant]
     Route: 065
  7. CYANOCOBALAMIN [Concomitant]
     Route: 065

REACTIONS (15)
  - AGITATION [None]
  - ANXIETY [None]
  - ARTERIOSCLEROSIS [None]
  - BLOOD PRESSURE INCREASED [None]
  - BREATH ODOUR [None]
  - CEREBROVASCULAR ACCIDENT [None]
  - DEMENTIA ALZHEIMER'S TYPE [None]
  - DEPRESSION [None]
  - EXCORIATION [None]
  - FALL [None]
  - FRACTURE [None]
  - INSOMNIA [None]
  - JAW DISORDER [None]
  - SCAB [None]
  - VITAMIN B12 DEFICIENCY [None]
